FAERS Safety Report 4582432-4 (Version None)
Quarter: 2005Q1

REPORT INFORMATION
  Report Type: 
  Country: None (occurrence: None)
  Receive Date: 20050127
  Receipt Date: 20040923
  Transmission Date: 20050727
  Serious: No
  Sender: FDA-Public Use
  Company Number: USA040979068

PATIENT
  Age: 7 Year
  Sex: Male
  Weight: 29 kg

DRUGS (3)
  1. STRATTERA [Suspect]
     Indication: ATTENTION DEFICIT/HYPERACTIVITY DISORDER
     Dosage: 30 MG DAY
  2. ADDERALL 10 [Concomitant]
  3. CLONIDINE [Concomitant]

REACTIONS (3)
  - ABNORMAL BEHAVIOUR [None]
  - DIARRHOEA [None]
  - FEELING ABNORMAL [None]
